FAERS Safety Report 9720861 (Version 3)
Quarter: 2014Q1

REPORT INFORMATION
  Report Type: Spontaneous
  Country: US (occurrence: US)
  Receive Date: 20131129
  Receipt Date: 20140120
  Transmission Date: 20141002
  Serious: No
  Sender: FDA-Public Use
  Company Number: US-ASTRAZENECA-2012SE71114

PATIENT
  Age: 53 Year
  Sex: Male
  Weight: 117.9 kg

DRUGS (5)
  1. PRILOSEC OTC [Suspect]
     Route: 048
  2. PULMICORT RESPULES [Suspect]
     Indication: NASAL IRRIGATION
     Route: 055
  3. RHINOCORT AQUA [Suspect]
     Route: 045
  4. SYMBICORT [Suspect]
     Indication: ASTHMA
     Dosage: 160/4.5 MCG, 2 PUFFS BID
     Route: 055
  5. SYMBICORT [Suspect]
     Indication: CHRONIC OBSTRUCTIVE PULMONARY DISEASE
     Dosage: 160/4.5 MCG, 2 PUFFS BID
     Route: 055

REACTIONS (10)
  - Weight decreased [Unknown]
  - Chronic obstructive pulmonary disease [Unknown]
  - Hypophagia [Unknown]
  - Asthma [Unknown]
  - Headache [Unknown]
  - Nausea [Unknown]
  - Intentional drug misuse [Unknown]
  - Off label use [Unknown]
  - Drug dose omission [Unknown]
  - Off label use [Unknown]
